FAERS Safety Report 8351161-3 (Version None)
Quarter: 2012Q2

REPORT INFORMATION
  Report Type: 
  Country: None (occurrence: None)
  Receive Date: 20120510
  Receipt Date: 20120507
  Transmission Date: 20120825
  Serious: No
  Sender: FDA-Public Use
  Company Number: US-PFIZER INC-2012111513

PATIENT
  Sex: Male
  Weight: 104 kg

DRUGS (5)
  1. BENADRYL [Concomitant]
     Indication: HYPERSENSITIVITY
     Dosage: UNK, ONE TABLET DAILY
     Route: 048
  2. FLONASE [Concomitant]
     Indication: HYPERSENSITIVITY
     Dosage: 50 MCG, DAILY
  3. ATORVASTATIN CALCIUM [Suspect]
     Indication: BLOOD CHOLESTEROL INCREASED
     Dosage: 10 MG, DAILY
     Dates: start: 20120101
  4. LIPITOR [Suspect]
     Indication: BLOOD CHOLESTEROL INCREASED
     Dosage: UNK
     Route: 065
  5. LISINOPRIL [Concomitant]
     Indication: BLOOD PRESSURE ABNORMAL
     Dosage: 10 MG, DAILY

REACTIONS (1)
  - BLOOD CHOLESTEROL INCREASED [None]
